FAERS Safety Report 8262905-3 (Version None)
Quarter: 2012Q2

REPORT INFORMATION
  Report Type: 
  Country: None (occurrence: None)
  Receive Date: 20120405
  Receipt Date: 20120329
  Transmission Date: 20120825
  Serious: Yes (Other)
  Sender: FDA-Public Use
  Company Number: JP-GLAXOSMITHKLINE-B0776505A

PATIENT
  Sex: Female

DRUGS (6)
  1. ARIXTRA [Suspect]
     Indication: THROMBOSIS PROPHYLAXIS
     Dosage: 1.5MG PER DAY
     Route: 058
     Dates: start: 20120114, end: 20120114
  2. HUSCODE [Concomitant]
     Dosage: 2IUAX PER DAY
     Route: 048
  3. CEFOTIAM [Concomitant]
     Dosage: 2G PER DAY
  4. CEFAZOLIN SODIUM [Concomitant]
     Dosage: 2G PER DAY
     Route: 048
  5. THEOPHYLLINE [Concomitant]
     Dosage: 2IUAX PER DAY
     Route: 048
  6. LANSOPRAZOLE [Concomitant]
     Dosage: 15MG PER DAY
     Route: 065

REACTIONS (5)
  - DIZZINESS [None]
  - SHOCK [None]
  - URTICARIA [None]
  - BLOOD PRESSURE DECREASED [None]
  - RASH [None]
